FAERS Safety Report 9538368 (Version 3)
Quarter: 2014Q1

REPORT INFORMATION
  Report Type: Report from Study
  Country: DE (occurrence: DE)
  Receive Date: 20130920
  Receipt Date: 20140207
  Transmission Date: 20141002
  Serious: Yes (Life-Threatening)
  Sender: FDA-Public Use
  Company Number: DE-ROCHE-1277348

PATIENT
  Age: 61 Year
  Sex: Male
  Weight: 106 kg

DRUGS (4)
  1. RITUXIMAB [Suspect]
     Indication: RHEUMATOID ARTHRITIS
     Dosage: 2 ADMINISTRATIONS WERE GIVEN
     Route: 065
     Dates: start: 20130605, end: 20130917
  2. METHOTREXATE [Suspect]
     Indication: RHEUMATOID ARTHRITIS
     Route: 048
     Dates: start: 20110411, end: 20130917
  3. HYDROCORTISONE [Concomitant]
     Indication: PREMEDICATION
     Route: 042
     Dates: start: 20130606, end: 20130917
  4. TAVEGIL [Concomitant]
     Indication: PREMEDICATION
     Dosage: 1 AMPULE
     Route: 042
     Dates: start: 20130606, end: 20130917

REACTIONS (2)
  - Lung neoplasm malignant [Not Recovered/Not Resolved]
  - Vocal cord paralysis [Not Recovered/Not Resolved]
